FAERS Safety Report 4428423-5 (Version None)
Quarter: 2004Q3

REPORT INFORMATION
  Report Type: 
  Country: None (occurrence: None)
  Receive Date: 20040813
  Receipt Date: 20040802
  Transmission Date: 20050211
  Serious: Yes (Hospitalization)
  Sender: FDA-Public Use
  Company Number: HQWYE693302AUG04

PATIENT
  Age: 55 Year
  Sex: Female

DRUGS (6)
  1. ADVIL [Suspect]
     Dosage: 4 TABLETS DAILY ORAL
     Route: 048
     Dates: start: 20040530, end: 20040602
  2. PREDNISONE TAB [Suspect]
     Dates: start: 20040515
  3. DOLIPRANE (PARACETAMOL, ) [Suspect]
     Dates: start: 20040530, end: 20040602
  4. NEURONTIN [Suspect]
     Indication: CONVULSION
     Dates: start: 20030801
  5. FLUCONAZOLE [Suspect]
     Dates: start: 20040530, end: 20040602
  6. TEMODAL [Concomitant]

REACTIONS (2)
  - CHOLESTASIS [None]
  - CYTOLYTIC HEPATITIS [None]
